FAERS Safety Report 17962618 (Version 1)
Quarter: 2020Q2

REPORT INFORMATION
  Report Type: Report from Study
  Country: JP (occurrence: JP)
  Receive Date: 20200630
  Receipt Date: 20200630
  Transmission Date: 20200714
  Serious: Yes (Hospitalization, Other)
  Sender: FDA-Public Use
  Company Number: JP-PFIZER INC-2019-05449

PATIENT
  Age: 57 Year
  Sex: Male
  Weight: 77.8 kg

DRUGS (12)
  1. BINIMETINIB [Suspect]
     Active Substance: BINIMETINIB
     Dosage: 60 MG
     Route: 048
     Dates: start: 2019, end: 2019
  2. ENCORAFENIB [Suspect]
     Active Substance: ENCORAFENIB
     Dosage: 300 MG
     Route: 048
     Dates: start: 2019, end: 2019
  3. BINIMETINIB [Suspect]
     Active Substance: BINIMETINIB
     Indication: MALIGNANT MELANOMA
     Dosage: 90 MG
     Route: 048
     Dates: start: 20190410, end: 20190411
  4. ENCORAFENIB [Suspect]
     Active Substance: ENCORAFENIB
     Indication: MALIGNANT MELANOMA
     Dosage: 450 MG
     Route: 048
     Dates: start: 20190410, end: 20190411
  5. TAFINLAR [Concomitant]
     Active Substance: DABRAFENIB MESYLATE
     Dosage: 200 UNK
     Dates: end: 20200220
  6. ENCORAFENIB [Suspect]
     Active Substance: ENCORAFENIB
     Dosage: 200 MG, 1X/DAY
     Route: 048
     Dates: start: 20190927, end: 20190928
  7. BINIMETINIB [Suspect]
     Active Substance: BINIMETINIB
     Dosage: 15 MG, 2X/DAY
     Route: 048
     Dates: start: 20190927, end: 20190928
  8. BINIMETINIB [Suspect]
     Active Substance: BINIMETINIB
     Dosage: 30 MG
     Route: 048
     Dates: start: 20190613, end: 201908
  9. TAFINLAR [Concomitant]
     Active Substance: DABRAFENIB MESYLATE
     Indication: MALIGNANT MELANOMA
     Dosage: 300 MG
     Dates: start: 20191009
  10. ENCORAFENIB [Suspect]
     Active Substance: ENCORAFENIB
     Dosage: 200 MG
     Route: 048
     Dates: start: 20190613, end: 201908
  11. MEKINIST [Concomitant]
     Active Substance: TRAMETINIB DIMETHYL SULFOXIDE
     Indication: MALIGNANT MELANOMA
     Dosage: 2 MG
     Route: 048
     Dates: start: 20191009
  12. MEKINIST [Concomitant]
     Active Substance: TRAMETINIB DIMETHYL SULFOXIDE
     Dosage: 1.5 MG
     Route: 048
     Dates: end: 20200220

REACTIONS (6)
  - Retinal detachment [Recovered/Resolved]
  - Pyrexia [Recovered/Resolved]
  - Liver disorder [Recovering/Resolving]
  - Pyrexia [Recovered/Resolved]
  - Retinal detachment [Recovered/Resolved]
  - Uveitis [Recovered/Resolved]

NARRATIVE: CASE EVENT DATE: 2019
